FAERS Safety Report 6497778-2 (Version None)
Quarter: 2009Q4

REPORT INFORMATION
  Report Type: 
  Country: None (occurrence: None)
  Receive Date: 20091215
  Receipt Date: 20091203
  Transmission Date: 20100525
  Serious: Yes (Hospitalization, Disabling)
  Sender: FDA-Public Use
  Company Number: US-KINGPHARMUSA00001-K200601295

PATIENT

DRUGS (9)
  1. ALTACE [Suspect]
     Indication: HYPERTENSION
     Dosage: 1.25 MG, QD
     Route: 048
     Dates: start: 19971201, end: 19980101
  2. ALTACE [Suspect]
     Dosage: 2.5 MG, QD
     Route: 048
     Dates: start: 19980101, end: 20010101
  3. ALTACE [Suspect]
     Dosage: 2.5 MG, QD
     Route: 048
     Dates: start: 20020705, end: 20030616
  4. ALTACE [Suspect]
     Dosage: 5 MG, QD
     Route: 048
     Dates: start: 20030616, end: 20060323
  5. HYDROCHLOROTHIAZIDE [Suspect]
     Indication: HYPERTENSION
     Route: 048
     Dates: start: 20010101, end: 20060323
  6. CARVEDILOL [Concomitant]
     Dosage: UNK
  7. XIPAMIDE [Concomitant]
     Dosage: UNK
  8. TRIAMTERENE [Concomitant]
     Dosage: UNK
  9. ACTRAPID HM [Concomitant]
     Dosage: UNK

REACTIONS (10)
  - CARPAL TUNNEL SYNDROME [None]
  - MUSCLE ATROPHY [None]
  - MUSCLE DISORDER [None]
  - MUSCLE INJURY [None]
  - MUSCLE SPASMS [None]
  - MUSCLE SWELLING [None]
  - MYALGIA [None]
  - MYOPATHY [None]
  - MYOSITIS [None]
  - SPINAL DISORDER [None]
